FAERS Safety Report 8770948 (Version 3)
Quarter: 2013Q1

REPORT INFORMATION
  Report Type: Report from Study
  Country: JP (occurrence: JP)
  Receive Date: 20120906
  Receipt Date: 20130212
  Transmission Date: 20140127
  Serious: Yes (Hospitalization, Other)
  Sender: FDA-Public Use
  Company Number: JP-009507513-1208JPN012342

PATIENT
  Age: 65 Year
  Sex: Female
  Weight: 56 kg

DRUGS (21)
  1. PEGINTRON [Suspect]
     Indication: CHRONIC HEPATITIS C
     Dosage: 1.5 MICROGRAM PER KILOGRAM, QW
     Route: 058
     Dates: start: 20120501, end: 20120529
  2. REBETOL [Suspect]
     Indication: CHRONIC HEPATITIS C
     Dosage: 600 MG, QD
     Route: 048
     Dates: start: 20120501, end: 20120507
  3. REBETOL [Suspect]
     Dosage: 400 MG, QD
     Route: 048
     Dates: start: 20120508, end: 20120521
  4. REBETOL [Suspect]
     Dosage: 200 MG, QD
     Route: 048
     Dates: start: 20120522, end: 20120529
  5. TELAVIC [Suspect]
     Indication: CHRONIC HEPATITIS C
     Dosage: DOSE: 2250 MG, QD
     Route: 048
     Dates: start: 20120501, end: 20120529
  6. URSO [Concomitant]
     Indication: HEPATITIS C
     Dosage: FORMULATION:POR
     Route: 048
  7. ESTRIEL [Concomitant]
     Indication: MENOPAUSAL SYMPTOMS
     Dosage: 2 MG, QD, FORMULATION:POR
     Route: 048
  8. ZETIA [Concomitant]
     Indication: HYPERLIPIDAEMIA
     Dosage: 10 MG, QD, FORMULATION: POR
     Route: 048
  9. NU-LOTAN TABLETS 25MG [Concomitant]
     Indication: HYPERTENSION
     Dosage: 25 MG, QD, FORMULATION:POR
     Route: 048
  10. TAKEPRON [Concomitant]
     Indication: GASTROOESOPHAGEAL REFLUX DISEASE
     Dosage: 15 MG, QD, FORMULATION:POR
     Route: 048
  11. LENDORMIN [Concomitant]
     Indication: INSOMNIA
     Dosage: 0.25 MG, QD, FORMULATION:POR
     Route: 048
  12. MAGMITT [Concomitant]
     Indication: CONSTIPATION
     Dosage: DOSE: 1500 MG, FORMULATION: POR
     Route: 048
  13. LOXONIN [Concomitant]
     Indication: BACK PAIN
     Dosage: FORMULATION:POR
     Route: 048
  14. ALLEGRA [Concomitant]
     Dosage: FORMULATION:POR
     Route: 048
     Dates: start: 20120504
  15. ANTEBATE [Concomitant]
     Dosage: DAILY DOSE UNKNOWN
     Route: 061
     Dates: start: 20120504
  16. SOLDEM 3A [Concomitant]
     Dosage: 500 ML, QD
     Route: 051
     Dates: start: 20120505, end: 20120508
  17. LACTEC [Concomitant]
     Dosage: 500 ML, QD
     Route: 051
     Dates: start: 20120508, end: 20120529
  18. ZYLORIC [Concomitant]
     Dosage: FORMULATION:POR
     Route: 048
     Dates: start: 20120508
  19. ALDACTONE A [Concomitant]
     Indication: OEDEMA PERIPHERAL
     Dosage: FORMULATION:POR
     Route: 048
     Dates: start: 20120605
  20. GASMOTIN [Concomitant]
     Indication: ENTEROCOLITIS
     Dosage: FORMULATION:POR
     Route: 048
     Dates: start: 20120605
  21. GASMOTIN [Concomitant]
     Dosage: FORMULATION:POR
     Route: 048
     Dates: start: 20120724

REACTIONS (4)
  - Herpes zoster [Recovering/Resolving]
  - Herpes zoster [Recovering/Resolving]
  - Decreased appetite [Recovering/Resolving]
  - Renal impairment [Not Recovered/Not Resolved]
